FAERS Safety Report 24927960 (Version 1)
Quarter: 2025Q1

REPORT INFORMATION
  Report Type: Spontaneous
  Country: US (occurrence: None)
  Receive Date: 20250204
  Receipt Date: 20250204
  Transmission Date: 20250408
  Serious: Yes (Life-Threatening)
  Sender: FDA-CTU
  Company Number: None

PATIENT
  Age: 40 Year
  Sex: Female
  Weight: 67.5 kg

DRUGS (1)
  1. DAXXIFY [Suspect]
     Active Substance: DAXIBOTULINUMTOXIN A-LANM
     Indication: Skin wrinkling
     Route: 030
     Dates: start: 202501, end: 20250204

REACTIONS (12)
  - Hypersensitivity [None]
  - Throat tightness [None]
  - Lung disorder [None]
  - Dysphagia [None]
  - Paranasal sinus discomfort [None]
  - Head discomfort [None]
  - Paranasal sinus hypersecretion [None]
  - Eye irritation [None]
  - Chest discomfort [None]
  - Impaired work ability [None]
  - Feeling abnormal [None]
  - Fear [None]

NARRATIVE: CASE EVENT DATE: 20250124
